FAERS Safety Report 6504205-5 (Version None)
Quarter: 2009Q4

REPORT INFORMATION
  Report Type: 
  Country: None (occurrence: None)
  Receive Date: 20091217
  Receipt Date: 20091217
  Transmission Date: 20100525
  Serious: Yes (Life-Threatening, Hospitalization)
  Sender: FDA-Public Use
  Company Number: PHHO2005AT07531

PATIENT
  Sex: Male
  Weight: 108 kg

DRUGS (8)
  1. STARLIX [Suspect]
     Dosage: LEVEL 1
     Route: 048
     Dates: start: 20030806
  2. STARLIX [Suspect]
     Dosage: LEVEL 2
     Route: 048
  3. DIOVAN T30230+CAPS [Suspect]
     Indication: CARDIOVASCULAR DISORDER
     Dosage: LEVEL 1
     Route: 048
     Dates: start: 20030806
  4. DIOVAN T30230+CAPS [Suspect]
     Dosage: LEVEL 2
     Route: 048
  5. ALDACTONE [Suspect]
     Indication: RENAL IMPAIRMENT
     Dosage: 50 MG X 2 PER WEEK
     Route: 048
  6. ACEMIN [Suspect]
     Indication: HYPERTENSION
     Dosage: 5 MG, QD
     Route: 048
  7. LASIX [Concomitant]
     Indication: CARDIAC FAILURE
  8. SIMVASTATIN [Concomitant]
     Indication: HYPERLIPIDAEMIA

REACTIONS (7)
  - ATRIAL FIBRILLATION [None]
  - BRADYCARDIA [None]
  - CARDIAC ARREST [None]
  - CARDIAC PACEMAKER INSERTION [None]
  - HYPERKALAEMIA [None]
  - RENAL IMPAIRMENT [None]
  - SYNCOPE [None]
